FAERS Safety Report 7344891-3 (Version None)
Quarter: 2011Q1

REPORT INFORMATION
  Report Type: 
  Country: None (occurrence: None)
  Receive Date: 20110228
  Receipt Date: 20110211
  Transmission Date: 20110831
  Serious: Yes (Hospitalization)
  Sender: FDA-Public Use
  Company Number: 012230

PATIENT
  Age: 8 Year
  Sex: Female
  Weight: 19.5 kg

DRUGS (4)
  1. LAMOTRIGINE [Concomitant]
  2. LEVETIRACETAM [Suspect]
     Indication: PARTIAL SEIZURES
     Dosage: (750 MG) ; (1000 MG) ; (1250 MG)
     Dates: start: 20060101, end: 20060101
  3. LEVETIRACETAM [Suspect]
     Indication: PARTIAL SEIZURES
     Dosage: (750 MG) ; (1000 MG) ; (1250 MG)
     Dates: start: 20060101, end: 20060101
  4. LEVETIRACETAM [Suspect]
     Indication: PARTIAL SEIZURES
     Dosage: (750 MG) ; (1000 MG) ; (1250 MG)
     Dates: start: 20060101

REACTIONS (3)
  - RESTLESSNESS [None]
  - AGGRESSION [None]
  - STATUS EPILEPTICUS [None]
